FAERS Safety Report 15298646 (Version 1)
Quarter: 2018Q3

REPORT INFORMATION
  Report Type: Spontaneous
  Country: JP (occurrence: JP)
  Receive Date: 20180820
  Receipt Date: 20180820
  Transmission Date: 20181010
  Serious: Yes (Other)
  Sender: FDA-Public Use
  Company Number: JP-NAPPMUNDI-GBR-2018-0053277

PATIENT
  Sex: Male

DRUGS (3)
  1. OXIFAST [Suspect]
     Active Substance: OXYCODONE
     Dosage: UNK
     Route: 041
  2. OXIFAST [Suspect]
     Active Substance: OXYCODONE
     Dosage: 20 MG, DAILY
     Route: 041
     Dates: start: 20170201
  3. OXIFAST [Suspect]
     Active Substance: OXYCODONE
     Indication: CANCER PAIN
     Dosage: 20 MG, DAILY
     Route: 041

REACTIONS (1)
  - Delirium [Not Recovered/Not Resolved]

NARRATIVE: CASE EVENT DATE: 20180205
